FAERS Safety Report 10080409 (Version 5)
Quarter: 2014Q4

REPORT INFORMATION
  Report Type: Report from Study
  Country: SE (occurrence: SE)
  Receive Date: 20140416
  Receipt Date: 20141030
  Transmission Date: 20150528
  Serious: Yes (Disabling)
  Sender: FDA-Public Use
  Company Number: SE-AMGEN-SWECT2014027194

PATIENT
  Age: 71 Year
  Sex: Female

DRUGS (1)
  1. ETANERCEPT [Suspect]
     Active Substance: ETANERCEPT
     Indication: PSORIATIC ARTHROPATHY
     Dosage: 50 MG, 1X/WEEK
     Route: 065
     Dates: start: 20130924, end: 20131215

REACTIONS (4)
  - Gait disturbance [Unknown]
  - Depression [Unknown]
  - Muscular weakness [Unknown]
  - Crying [Unknown]

NARRATIVE: CASE EVENT DATE: 20131215
